FAERS Safety Report 24585943 (Version 1)
Quarter: 2024Q4

REPORT INFORMATION
  Report Type: Spontaneous
  Country: US (occurrence: US)
  Receive Date: 20241106
  Receipt Date: 20241106
  Transmission Date: 20250114
  Serious: No
  Sender: INCYTE
  Company Number: US-INCYTE CORPORATION-2024IN011099

PATIENT

DRUGS (3)
  1. ZYNYZ [Suspect]
     Active Substance: RETIFANLIMAB-DLWR
     Indication: Angiosarcoma
     Dosage: 350 MILLIGRAM EVERY 3 WEEKS
     Route: 065
  2. GEMCITABINE [Concomitant]
     Active Substance: GEMCITABINE
     Indication: Angiosarcoma
     Dosage: UNK
     Route: 065
  3. DOCETAXEL [Concomitant]
     Active Substance: DOCETAXEL
     Indication: Angiosarcoma
     Dosage: UNK
     Route: 065

REACTIONS (1)
  - Off label use [Unknown]
